FAERS Safety Report 9323828 (Version 2)
Quarter: 2013Q3

REPORT INFORMATION
  Report Type: Spontaneous
  Country: DE (occurrence: DE)
  Receive Date: 20130603
  Receipt Date: 20130709
  Transmission Date: 20140515
  Serious: Yes (Hospitalization)
  Sender: FDA-Public Use
  Company Number: DE-JNJFOC-20130514480

PATIENT
  Sex: Female

DRUGS (4)
  1. IMODIUM AKUT N [Suspect]
     Route: 048
  2. IMODIUM AKUT N [Suspect]
     Indication: DIARRHOEA
     Route: 048
  3. IMODIUM AKUT [Suspect]
     Route: 048
  4. IMODIUM AKUT [Suspect]
     Indication: DIARRHOEA
     Route: 048

REACTIONS (3)
  - Intentional drug misuse [Unknown]
  - Hospitalisation [Recovered/Resolved]
  - Faecal incontinence [Not Recovered/Not Resolved]
